FAERS Safety Report 4735665-8 (Version None)
Quarter: 2005Q3

REPORT INFORMATION
  Report Type: 
  Country: None (occurrence: None)
  Receive Date: 20050805
  Receipt Date: 20050804
  Transmission Date: 20060218
  Serious: Yes (Hospitalization)
  Sender: FDA-Public Use
  Company Number: FR-SANOFI-SYNTHELABO-F01200501428

PATIENT
  Sex: Male
  Weight: 65 kg

DRUGS (4)
  1. OXALIPLATIN [Suspect]
     Route: 042
  2. FLUOROURACIL [Suspect]
     Route: 042
  3. LEUCOVORIN [Suspect]
     Route: 042
  4. RADIOTHERAPY [Concomitant]
     Dosage: TOTAL DOSE OF FRACTION ADMINISTERED BEFORE SAE: 32 GY
     Route: 050
     Dates: start: 20050712, end: 20050803

REACTIONS (4)
  - APLASIA [None]
  - DEHYDRATION [None]
  - MUCOSAL INFLAMMATION [None]
  - PYREXIA [None]
